FAERS Safety Report 19706777 (Version 1)
Quarter: 2021Q3

REPORT INFORMATION
  Report Type: Spontaneous
  Country: DE (occurrence: DE)
  Receive Date: 20210817
  Receipt Date: 20210817
  Transmission Date: 20211014
  Serious: Yes (Hospitalization)
  Sender: FDA-Public Use
  Company Number: DE-TEVA-2021-DE-1941196

PATIENT
  Age: 81 Year
  Sex: Female

DRUGS (4)
  1. PAROXETIN AL 20 MG FILMTABLETTEN [Suspect]
     Active Substance: PAROXETINE HYDROCHLORIDE
     Dosage: 20 MILLIGRAM DAILY;   1?0?0?0
     Route: 048
  2. JODID 100MIKROGRAMM [Concomitant]
     Dosage: 100 MICROGRAM DAILY;  1?0?0?0
     Route: 048
  3. QUETIAPIN ABZ 150 MG RETARDTABLETTEN [Suspect]
     Active Substance: QUETIAPINE
     Dosage: 150 MILLIGRAM DAILY;   0?0?0?1
     Route: 048
  4. HYPNOREX RETARD 400 MG [Suspect]
     Active Substance: LITHIUM CARBONATE
     Dosage: .5 DOSAGE FORMS DAILY; 400 MG, 0.5?0?0?0,
     Route: 048

REACTIONS (2)
  - Constipation [Unknown]
  - Weight decreased [Unknown]

NARRATIVE: CASE EVENT DATE: 20200630
